FAERS Safety Report 5328140-3 (Version None)
Quarter: 2007Q2

REPORT INFORMATION
  Report Type: 
  Country: None (occurrence: None)
  Receive Date: 20070514
  Receipt Date: 20070427
  Transmission Date: 20071010
  Serious: Yes (Other)
  Sender: FDA-Public Use
  Company Number: US020002

PATIENT
  Age: 48 Year
  Sex: Female
  Weight: 66.9 kg

DRUGS (1)
  1. ACTIQ [Suspect]
     Dosage: UNK BUCCAL
     Route: 002
     Dates: start: 20061031

REACTIONS (13)
  - ACIDOSIS [None]
  - AGITATION [None]
  - ALANINE AMINOTRANSFERASE INCREASED [None]
  - ANION GAP INCREASED [None]
  - ASPARTATE AMINOTRANSFERASE INCREASED [None]
  - CONFUSIONAL STATE [None]
  - DELUSION [None]
  - ELECTROLYTE IMBALANCE [None]
  - HALLUCINATION [None]
  - INTENTIONAL DRUG MISUSE [None]
  - IRRITABILITY [None]
  - RESPIRATORY DEPRESSION [None]
  - SUICIDE ATTEMPT [None]
